FAERS Safety Report 21192370 (Version 2)
Quarter: 2023Q1

REPORT INFORMATION
  Report Type: Spontaneous
  Country: CA (occurrence: CA)
  Receive Date: 20220809
  Receipt Date: 20230215
  Transmission Date: 20230417
  Serious: Yes (Other)
  Sender: FDA-Public Use
  Company Number: CA-BAUSCH-BL-2022-019588

PATIENT
  Age: 60 Year
  Sex: Female

DRUGS (1)
  1. SILIQ [Suspect]
     Active Substance: BRODALUMAB
     Indication: Product used for unknown indication
     Dosage: 210MG/1.5 ML SOLUTION
     Route: 030

REACTIONS (3)
  - Anaphylactic reaction [Unknown]
  - Arthralgia [Unknown]
  - Incorrect route of product administration [Unknown]
